FAERS Safety Report 10557696 (Version 2)
Quarter: 2014Q4

REPORT INFORMATION
  Report Type: Spontaneous
  Country: CN (occurrence: CN)
  Receive Date: 20141031
  Receipt Date: 20141114
  Transmission Date: 20150529
  Serious: Yes (Other)
  Sender: FDA-Public Use
  Company Number: CN-JNJFOC-20141017422

PATIENT
  Age: 39 Year
  Sex: Female
  Weight: 66 kg

DRUGS (2)
  1. CHILDRENS MOTRIN [Suspect]
     Active Substance: IBUPROFEN
     Indication: PYREXIA
     Route: 048
     Dates: start: 20140505, end: 20140505
  2. CHILDRENS MOTRIN [Suspect]
     Active Substance: IBUPROFEN
     Indication: OROPHARYNGEAL PAIN
     Route: 048
     Dates: start: 20140505, end: 20140505

REACTIONS (5)
  - Vomiting [Recovering/Resolving]
  - Stomatitis [Recovering/Resolving]
  - Diarrhoea [Recovering/Resolving]
  - Trismus [Recovering/Resolving]
  - Rash [Recovering/Resolving]

NARRATIVE: CASE EVENT DATE: 20140505
